FAERS Safety Report 8327606-1 (Version None)
Quarter: 2012Q2

REPORT INFORMATION
  Report Type: 
  Country: None (occurrence: None)
  Receive Date: 20120502
  Receipt Date: 20120418
  Transmission Date: 20120825
  Serious: Yes (Hospitalization)
  Sender: FDA-Public Use
  Company Number: CN-JNJFOC-20120413542

PATIENT
  Sex: Female

DRUGS (3)
  1. TOPIRAMATE [Suspect]
     Dosage: 1 PIECE EACH TIME ONCE A DAY
     Route: 048
     Dates: start: 20100608, end: 20110608
  2. TOPIRAMATE [Suspect]
     Dosage: IRREGULARLY FROM 2007
     Route: 048
     Dates: start: 20070101
  3. TOPIRAMATE [Suspect]
     Indication: EPILEPSY
     Dosage: 4 PIECES EACH TIME TWICE A DAY
     Route: 048
     Dates: start: 20100101

REACTIONS (2)
  - TREATMENT NONCOMPLIANCE [None]
  - PSORIASIS [None]
